FAERS Safety Report 15009431 (Version 2)
Quarter: 2018Q2

REPORT INFORMATION
  Report Type: Spontaneous
  Country: IL (occurrence: IL)
  Receive Date: 20180614
  Receipt Date: 20180622
  Transmission Date: 20180711
  Serious: Yes (Other)
  Sender: FDA-Public Use
  Company Number: IL-CONCORDIA PHARMACEUTICALS INC.-GSH201806-001960

PATIENT
  Age: 45 Year
  Sex: Female

DRUGS (24)
  1. DOXYCYCLINE. [Suspect]
     Active Substance: DOXYCYCLINE
     Dosage: 105 MIN
  2. DOXYCYCLINE. [Suspect]
     Active Substance: DOXYCYCLINE
     Dosage: 120 MIN
  3. DOXYCYCLINE. [Suspect]
     Active Substance: DOXYCYCLINE
     Dosage: 240 MIN
     Route: 048
     Dates: end: 201701
  4. HYDROXYCHLOROQUINE TABLET [Suspect]
     Active Substance: HYDROXYCHLOROQUINE
     Indication: Q FEVER
  5. CLARITHROMYCIN. [Suspect]
     Active Substance: CLARITHROMYCIN
     Indication: PNEUMONIA BACTERIAL
  6. DOXYCYCLINE. [Suspect]
     Active Substance: DOXYCYCLINE
     Indication: PNEUMONIA BACTERIAL
     Dosage: 15 MIN
     Dates: start: 20141228
  7. DOXYCYCLINE. [Suspect]
     Active Substance: DOXYCYCLINE
     Dosage: 45 MIN
     Dates: start: 20141228
  8. DOXYCYCLINE. [Suspect]
     Active Substance: DOXYCYCLINE
     Dosage: 195 MIN
  9. MOXIFLOXACIN HYDROCHLORIDE. [Suspect]
     Active Substance: MOXIFLOXACIN HYDROCHLORIDE
     Indication: PNEUMONIA BACTERIAL
  10. HYDROXYCHLOROQUINE TABLET [Suspect]
     Active Substance: HYDROXYCHLOROQUINE
     Indication: PNEUMONIA
     Route: 065
     Dates: start: 20141221, end: 201701
  11. DOXYCYCLINE. [Suspect]
     Active Substance: DOXYCYCLINE
     Indication: Q FEVER
     Dosage: O MIN
     Dates: start: 20141228
  12. DOXYCYCLINE. [Suspect]
     Active Substance: DOXYCYCLINE
     Dosage: 30 MIN
     Dates: start: 20141228
  13. DOXYCYCLINE. [Suspect]
     Active Substance: DOXYCYCLINE
     Dosage: 90 MIN
     Dates: start: 20141228
  14. DOXYCYCLINE. [Suspect]
     Active Substance: DOXYCYCLINE
     Dosage: 210 MIN
  15. CLARITHROMYCIN. [Suspect]
     Active Substance: CLARITHROMYCIN
     Indication: Q FEVER
     Route: 065
     Dates: start: 20141002, end: 20141012
  16. SULFAMETHOXAZOLE/TRIMETHOPRIM [Suspect]
     Active Substance: SULFAMETHOXAZOLE\TRIMETHOPRIM
     Indication: Q FEVER
  17. DOXYCYCLINE. [Suspect]
     Active Substance: DOXYCYCLINE
     Dosage: 60 MIN
     Dates: start: 20141228
  18. DOXYCYCLINE. [Suspect]
     Active Substance: DOXYCYCLINE
     Dosage: 135 MIN
  19. SULFAMETHOXAZOLE/TRIMETHOPRIM [Suspect]
     Active Substance: SULFAMETHOXAZOLE\TRIMETHOPRIM
     Indication: PNEUMONIA
     Route: 065
     Dates: start: 20141221, end: 201701
  20. DOXYCYCLINE. [Suspect]
     Active Substance: DOXYCYCLINE
     Dosage: 180 MIN
  21. DOXYCYCLINE. [Suspect]
     Active Substance: DOXYCYCLINE
     Dosage: 75 MIN
     Dates: start: 20141228
  22. DOXYCYCLINE. [Suspect]
     Active Substance: DOXYCYCLINE
     Dosage: 150 MIN
  23. DOXYCYCLINE. [Suspect]
     Active Substance: DOXYCYCLINE
     Dosage: 165 MIN
  24. MOXIFLOXACIN HYDROCHLORIDE. [Suspect]
     Active Substance: MOXIFLOXACIN HYDROCHLORIDE
     Indication: Q FEVER
     Route: 065
     Dates: start: 20141120, end: 20141205

REACTIONS (7)
  - Dyspnoea [Unknown]
  - Nausea [Unknown]
  - Pneumonia bacterial [Unknown]
  - Q fever [Recovered/Resolved]
  - Drug ineffective [Unknown]
  - Pruritus [Unknown]
  - Disease progression [Unknown]
